FAERS Safety Report 6760740-6 (Version None)
Quarter: 2010Q2

REPORT INFORMATION
  Report Type: 
  Country: None (occurrence: None)
  Receive Date: 20100608
  Receipt Date: 20100601
  Transmission Date: 20101027
  Serious: Yes (Other)
  Sender: FDA-Public Use
  Company Number: US-RB-008144-10

PATIENT
  Age: 44 Year
  Sex: Female

DRUGS (1)
  1. SUBOXONE [Suspect]
     Indication: DRUG USE FOR UNKNOWN INDICATION
     Dosage: DOSING DETAILS UNKNOWN
     Route: 065

REACTIONS (6)
  - ANGER [None]
  - DEPRESSION [None]
  - DRUG DEPENDENCE [None]
  - MEMORY IMPAIRMENT [None]
  - SOMNOLENCE [None]
  - SUICIDAL IDEATION [None]
